FAERS Safety Report 15962797 (Version 1)
Quarter: 2019Q1

REPORT INFORMATION
  Report Type: Spontaneous
  Country: EG (occurrence: EG)
  Receive Date: 20190214
  Receipt Date: 20190214
  Transmission Date: 20190417
  Serious: Yes (Hospitalization, Other)
  Sender: FDA-Public Use
  Company Number: EG-GILEAD-2019-0390884

PATIENT
  Age: 62 Year
  Sex: Male
  Weight: 75 kg

DRUGS (4)
  1. SOVALDI [Suspect]
     Active Substance: SOFOSBUVIR
     Indication: HEPATITIS C
     Route: 048
  2. MIXTARD [INSULIN;ISOPHANE INSULIN] [Concomitant]
  3. CARVID [Concomitant]
  4. QUREVO [Suspect]
     Active Substance: OMBITASVIR\PARITAPREVIR\RITONAVIR
     Indication: HEPATITIS C
     Route: 048

REACTIONS (4)
  - Duodenitis [Unknown]
  - Haematemesis [Unknown]
  - Melaena [Unknown]
  - Gastrooesophageal sphincter insufficiency [Unknown]
